FAERS Safety Report 16242857 (Version 1)
Quarter: 2019Q2

REPORT INFORMATION
  Report Type: Spontaneous
  Country: US (occurrence: US)
  Receive Date: 20190425
  Receipt Date: 20190425
  Transmission Date: 20190711
  Serious: Yes (Disabling)
  Sender: FDA-Public Use
  Company Number: None

PATIENT
  Age: 91 Year
  Sex: Female
  Weight: 62.1 kg

DRUGS (13)
  1. MUSINEX [Concomitant]
  2. LOSARTIN [Concomitant]
     Active Substance: LOSARTAN
  3. ALFALFA [Concomitant]
     Active Substance: ALFALFA
  4. COLESEVELAM HCL 625MG TABLETSGENERIC FOR WELCHOL [Suspect]
     Active Substance: COLESEVELAM HYDROCHLORIDE
     Indication: BLOOD CHOLESTEROL INCREASED
     Dosage: ?          QUANTITY:6 TABLET(S);?
     Route: 048
  5. VIT D [Concomitant]
     Active Substance: VITAMIN D NOS
  6. SIMPLY SALINE [Concomitant]
  7. ELCHOL [Concomitant]
  8. AMLODOPINE [Concomitant]
     Active Substance: AMLODIPINE BESYLATE
  9. ALLEGRA [Concomitant]
     Active Substance: FEXOFENADINE HYDROCHLORIDE
  10. VITAMIN C [Concomitant]
     Active Substance: ASCORBIC ACID
  11. MIRALEX [Concomitant]
  12. SENNA [Concomitant]
     Active Substance: SENNA LEAF\SENNOSIDES\SENNOSIDES A AND B
  13. AREDS2 [Concomitant]

REACTIONS (3)
  - Haemorrhoidal haemorrhage [None]
  - Constipation [None]
  - Pain [None]

NARRATIVE: CASE EVENT DATE: 20190201
